FAERS Safety Report 11694065 (Version 1)
Quarter: 2015Q4

REPORT INFORMATION
  Report Type: Spontaneous
  Country: US (occurrence: US)
  Receive Date: 20151103
  Receipt Date: 20151103
  Transmission Date: 20160304
  Serious: Yes (Hospitalization)
  Sender: FDA-Public Use
  Company Number: US-PFIZER INC-2015320440

PATIENT
  Age: 18 Year
  Sex: Male
  Weight: 73 kg

DRUGS (5)
  1. CHILDRENS DIMETAPP COLD AND COUGH [Suspect]
     Active Substance: BROMPHENIRAMINE MALEATE\DEXTROMETHORPHAN HYDROBROMIDE\PHENYLEPHRINE HYDROCHLORIDE
     Indication: COUGH
     Dosage: UNK
  2. NOVOLOG [Concomitant]
     Active Substance: INSULIN ASPART
     Indication: TYPE 1 DIABETES MELLITUS
     Dosage: UNK
  3. CHILDRENS DIMETAPP NIGHTTIME COLD AND CONGESTION [Suspect]
     Active Substance: DIPHENHYDRAMINE HYDROCHLORIDE\PHENYLEPHRINE HYDROCHLORIDE
     Indication: NASOPHARYNGITIS
  4. CHILDRENS DIMETAPP NIGHTTIME COLD AND CONGESTION [Suspect]
     Active Substance: DIPHENHYDRAMINE HYDROCHLORIDE\PHENYLEPHRINE HYDROCHLORIDE
     Indication: COUGH
     Dosage: 20 ML, SINGLE
     Dates: start: 20150922, end: 20150922
  5. LANTUS [Concomitant]
     Active Substance: INSULIN GLARGINE
     Indication: TYPE 1 DIABETES MELLITUS
     Dosage: 25 IU, 2X/DAY (IN MORNING AND IN LUNCH)

REACTIONS (5)
  - Drug ineffective [Recovered/Resolved]
  - Somnolence [Unknown]
  - Hypersomnia [Recovered/Resolved]
  - Dizziness [Unknown]
  - Drug effect prolonged [None]

NARRATIVE: CASE EVENT DATE: 201509
